FAERS Safety Report 8717813 (Version 2)
Quarter: 2012Q4

REPORT INFORMATION
  Report Type: Spontaneous
  Country: CA (occurrence: None)
  Receive Date: 20120726
  Receipt Date: 20120910
  Transmission Date: 20130627
  Serious: Yes (Hospitalization)
  Sender: FDA-Public Use
  Company Number: INT_00089_2012

PATIENT
  Age: 56 Year
  Sex: Male

DRUGS (3)
  1. MEROPENEM [Suspect]
     Indication: OSTEOMYELITIS BACTERIAL
     Dosage: (DF)
  2. MEROPENEM [Suspect]
     Indication: NOSOCOMIAL INFECTION
     Dosage: (DF)
  3. PIPERACILLIN SODIUM\TAZOBACTAM SODIUM [Suspect]
     Indication: OSTEOMYELITIS BACTERIAL
     Dosage: (DF)

REACTIONS (7)
  - Tubulointerstitial nephritis [None]
  - Renal failure acute [None]
  - Pyrexia [None]
  - Rash [None]
  - Dialysis [None]
  - Nosocomial infection [None]
  - Cross sensitivity reaction [None]
